FAERS Safety Report 7829284-4 (Version None)
Quarter: 2011Q4

REPORT INFORMATION
  Report Type: 
  Country: None (occurrence: None)
  Receive Date: 20111020
  Receipt Date: 20111017
  Transmission Date: 20120403
  Serious: Yes (Other)
  Sender: FDA-Public Use
  Company Number: US-BAYER-2011-100725

PATIENT
  Age: 86 Year
  Sex: Female
  Weight: 91 kg

DRUGS (9)
  1. ATENOLOL [Concomitant]
  2. SYNTHROID [Concomitant]
  3. DIURETICS [Concomitant]
  4. ALPRAZOLAM [Concomitant]
  5. VITAMIN D [Concomitant]
  6. NAPROXEN SODIUM [Suspect]
     Dosage: 1 DF, PRN
     Route: 048
     Dates: start: 20110901, end: 20111017
  7. POTASSIUM [Concomitant]
  8. GLYBURIDE [Concomitant]
  9. WATER PILL [Concomitant]

REACTIONS (8)
  - HYPERSENSITIVITY [None]
  - BLISTER [None]
  - ERYTHEMA [None]
  - RASH [None]
  - ABDOMINAL PAIN [None]
  - URTICARIA [None]
  - SWELLING FACE [None]
  - HEADACHE [None]
